FAERS Safety Report 4626921-2 (Version None)
Quarter: 2005Q2

REPORT INFORMATION
  Report Type: 
  Country: None (occurrence: None)
  Receive Date: 20050405
  Receipt Date: 20041115
  Transmission Date: 20051028
  Serious: Yes (Other)
  Sender: FDA-Public Use
  Company Number: A0534073B

PATIENT
  Age: 39 Year
  Sex: Female
  Weight: 103.2 kg

DRUGS (2)
  1. TUMS SMOOTH DISSOLVE TABLETS, PEPPERMINT [Suspect]
     Route: 048
  2. PREVACID [Concomitant]
     Route: 048
     Dates: start: 20030101

REACTIONS (2)
  - DRUG EXPOSURE DURING PREGNANCY [None]
  - GESTATIONAL DIABETES [None]
